FAERS Safety Report 14332710 (Version 3)
Quarter: 2018Q1

REPORT INFORMATION
  Report Type: Spontaneous
  Country: NL (occurrence: NL)
  Receive Date: 20171228
  Receipt Date: 20180108
  Transmission Date: 20180509
  Serious: Yes (Other)
  Sender: FDA-Public Use
  Company Number: NL-PFIZER INC-2017548522

PATIENT
  Age: 68 Year
  Sex: Male

DRUGS (5)
  1. DEXAMETHASONE. [Concomitant]
     Active Substance: DEXAMETHASONE
     Dosage: 4 MG, DAILY
     Route: 048
  2. ERBITUX [Concomitant]
     Active Substance: CETUXIMAB
     Dosage: 400 MG/M2 (LOADING DOSE)
     Route: 048
  3. METHOTREXATE SODIUM. [Suspect]
     Active Substance: METHOTREXATE SODIUM
     Indication: METASTASES TO MENINGES
     Dosage: 12 MG, CYCLIC (EVERY 2 WEEKS)
     Route: 037
  4. ERBITUX [Concomitant]
     Active Substance: CETUXIMAB
     Dosage: 250 MG/M2, WEEKLY (STANDARD DOSE)
     Route: 048
  5. DEPOCYT [Suspect]
     Active Substance: CYTARABINE
     Indication: METASTASES TO MENINGES
     Dosage: 50 MG, CYCLIC (EVERY 2 WEEKS)
     Route: 037

REACTIONS (2)
  - Dehydration [Unknown]
  - Meningitis chemical [Unknown]
